FAERS Safety Report 9511242 (Version 1)
Quarter: 2013Q3

REPORT INFORMATION
  Report Type: Spontaneous
  Country: US (occurrence: None)
  Receive Date: 20130909
  Receipt Date: 20130909
  Transmission Date: 20140515
  Serious: No
  Sender: FDA-Public Use
  Company Number: None

PATIENT
  Age: 61 Year
  Sex: Male

DRUGS (9)
  1. AMILODIPINE BESYLATE [Suspect]
     Indication: BLOOD PRESSURE
     Route: 048
     Dates: start: 201302, end: 201305
  2. LYSINOPRIL [Concomitant]
  3. AMLODIPINE [Concomitant]
  4. FISH OIL [Concomitant]
  5. MELARONLE [Concomitant]
  6. RESVENATROL [Concomitant]
  7. MAGNESIUM [Concomitant]
  8. BONE MEAL W/VITAMIN D [Concomitant]
  9. ALIVE MULTIVITAMIN [Concomitant]

REACTIONS (2)
  - Varicose vein [None]
  - Local swelling [None]
